FAERS Safety Report 7069942-5 (Version None)
Quarter: 2010Q4

REPORT INFORMATION
  Report Type: 
  Country: None (occurrence: None)
  Receive Date: 20101028
  Receipt Date: 20100719
  Transmission Date: 20110411
  Serious: No
  Sender: FDA-Public Use
  Company Number: US-WYE-H16582110

PATIENT
  Age: 72 Year
  Sex: Female
  Weight: 98.06 kg

DRUGS (2)
  1. ADVIL [Suspect]
     Indication: ARTHRALGIA
     Dosage: 2 TABLETS AS NEEDED
     Route: 048
     Dates: start: 20090101
  2. ADVIL PM [Concomitant]

REACTIONS (1)
  - BLISTER [None]
